FAERS Safety Report 8488768-9 (Version None)
Quarter: 2012Q2

REPORT INFORMATION
  Report Type: 
  Country: None (occurrence: None)
  Receive Date: 20120626
  Receipt Date: 20120611
  Transmission Date: 20120825
  Serious: Yes (Hospitalization, Disabling, Other)
  Sender: FDA-Public Use
  Company Number: 2011MA007910

PATIENT
  Sex: Female
  Weight: 64.4108 kg

DRUGS (34)
  1. METOCLOPRAMIDE [Suspect]
     Indication: IMPAIRED GASTRIC EMPTYING
     Dosage: 10 MG;QID
     Dates: start: 19780101, end: 20110301
  2. DIETARY SUPPLEMENTS [Concomitant]
  3. PROCHLORPERAZINE [Concomitant]
  4. PROVENTIL [Concomitant]
  5. TENORMIN [Concomitant]
  6. TRILEPTAL [Concomitant]
  7. VITAMIN K TAB [Concomitant]
  8. AMITRIPTYLINE HYDROCHLORIDE [Concomitant]
  9. ATIVAN [Concomitant]
  10. ATORVENT [Concomitant]
  11. PROMETHAZINE [Concomitant]
  12. VITAMIN E [Concomitant]
  13. ALBUTEROL [Concomitant]
  14. LEVOTHROID [Concomitant]
  15. PULMICORT [Concomitant]
  16. THORAZINE [Concomitant]
  17. VITAMIN B-12 [Concomitant]
  18. INDERAL [Concomitant]
  19. PROPULSID [Concomitant]
  20. STEROIDS [Concomitant]
  21. VISTARIL [Concomitant]
  22. HYDROCHLOROTHIAZIDE [Concomitant]
  23. COMPAZINE [Concomitant]
  24. NASACORT [Concomitant]
  25. SALT TABLETS [Concomitant]
  26. BENADRYL [Concomitant]
  27. DEPO-PROVERA [Concomitant]
  28. PEPCID [Concomitant]
  29. THEO-DUR [Concomitant]
  30. IRON [Concomitant]
  31. PRECOSE [Concomitant]
  32. VITAMIN D [Concomitant]
  33. SINGULAIR [Concomitant]
  34. WELLBUTRIN [Concomitant]

REACTIONS (62)
  - CHOLELITHIASIS [None]
  - DYSPNOEA [None]
  - NOCTURIA [None]
  - CONSTIPATION [None]
  - RASH [None]
  - MANIA [None]
  - PARAESTHESIA [None]
  - DECREASED APPETITE [None]
  - DIZZINESS [None]
  - FATIGUE [None]
  - VITAMIN B12 DEFICIENCY [None]
  - LORDOSIS [None]
  - MOVEMENT DISORDER [None]
  - MALABSORPTION [None]
  - AUTONOMIC FAILURE SYNDROME [None]
  - SPINAL OSTEOARTHRITIS [None]
  - EMPHYSEMA [None]
  - NERVOUSNESS [None]
  - BLOOD GLUCOSE FLUCTUATION [None]
  - CEREBELLAR ATAXIA [None]
  - TREMOR [None]
  - ABDOMINAL ADHESIONS [None]
  - ATTENTION DEFICIT/HYPERACTIVITY DISORDER [None]
  - AUTONOMIC NEUROPATHY [None]
  - PERINEURIAL CYST [None]
  - PARATHYROID DISORDER [None]
  - PARKINSONISM [None]
  - CHRONIC OBSTRUCTIVE PULMONARY DISEASE [None]
  - ARTHRITIS [None]
  - HYPERSENSITIVITY [None]
  - PSYCHOMOTOR HYPERACTIVITY [None]
  - ORTHOSTATIC HYPOTENSION [None]
  - MUSCLE SPASMS [None]
  - RENAL FAILURE [None]
  - TARDIVE DYSKINESIA [None]
  - RESTLESS LEGS SYNDROME [None]
  - ECONOMIC PROBLEM [None]
  - PALPITATIONS [None]
  - TOBACCO ABUSE [None]
  - RENAL DISORDER [None]
  - IMPAIRED GASTRIC EMPTYING [None]
  - THIRST [None]
  - HYPOTHYROIDISM [None]
  - HYPERCALCIURIA [None]
  - MYOFASCIAL PAIN SYNDROME [None]
  - HYPOAESTHESIA [None]
  - ANXIETY [None]
  - ARRHYTHMIA [None]
  - DYSPNOEA EXERTIONAL [None]
  - CARDIOLIPIN ANTIBODY POSITIVE [None]
  - EXTRAPYRAMIDAL DISORDER [None]
  - ASTHMA [None]
  - NAUSEA [None]
  - ASTHENIA [None]
  - INSOMNIA [None]
  - VOMITING [None]
  - AMNESIA [None]
  - NEPHROLITHIASIS [None]
  - KYPHOSIS [None]
  - MUSCLE TIGHTNESS [None]
  - ADRENAL INSUFFICIENCY [None]
  - ANKLE FRACTURE [None]
